FAERS Safety Report 5641863-1 (Version None)
Quarter: 2008Q1

REPORT INFORMATION
  Report Type: 
  Country: None (occurrence: None)
  Receive Date: 20080227
  Receipt Date: 20080131
  Transmission Date: 20080703
  Serious: No
  Sender: FDA-Public Use
  Company Number: US-BOEHRINGER INGELHEIM GMBH, GERMANY-2008-BP-01568BP

PATIENT
  Sex: Female

DRUGS (10)
  1. SPIRIVA [Suspect]
     Indication: CARCINOID TUMOUR
     Route: 055
     Dates: start: 20071201, end: 20080129
  2. SPIRIVA [Suspect]
     Route: 055
     Dates: start: 20080129, end: 20080129
  3. PULMICORT [Suspect]
     Indication: DYSPNOEA
     Dates: start: 20071101
  4. ALBUTEROL [Concomitant]
     Indication: DYSPNOEA
  5. ACTOS [Concomitant]
     Indication: DIABETES MELLITUS
  6. GLYBURIDE [Concomitant]
     Indication: DIABETES MELLITUS
  7. XANAX [Concomitant]
     Indication: ANXIETY
  8. TRAZODONE HCL [Concomitant]
     Indication: DEPRESSION
  9. LASIX [Concomitant]
     Indication: DIURETIC THERAPY
  10. POTASSIUM CHLORIDE [Concomitant]
     Indication: ELECTROLYTE SUBSTITUTION THERAPY

REACTIONS (4)
  - DIABETES MELLITUS INADEQUATE CONTROL [None]
  - FEELING JITTERY [None]
  - INCREASED APPETITE [None]
  - THIRST [None]
